FAERS Safety Report 4863962-4 (Version None)
Quarter: 2005Q4

REPORT INFORMATION
  Report Type: 
  Country: None (occurrence: None)
  Receive Date: 20051219
  Receipt Date: 20051213
  Transmission Date: 20060501
  Serious: Yes (Other)
  Sender: FDA-Public Use
  Company Number: GBWYE238415DEC05

PATIENT
  Sex: Male

DRUGS (1)
  1. EFFEXOR [Suspect]
     Route: 064
     Dates: start: 20050101, end: 20051124

REACTIONS (2)
  - DEXTROCARDIA [None]
  - DRUG EXPOSURE DURING PREGNANCY [None]
